FAERS Safety Report 13983236 (Version 1)
Quarter: 2017Q3

REPORT INFORMATION
  Report Type: Spontaneous
  Country: ES (occurrence: ES)
  Receive Date: 20170918
  Receipt Date: 20170918
  Transmission Date: 20171128
  Serious: Yes (Death)
  Sender: FDA-Public Use
  Company Number: PHHY2017ES136934

PATIENT
  Sex: Male

DRUGS (1)
  1. AMOXICILLIN CLAVULANIC ACID SANDOZ [Suspect]
     Active Substance: AMOXICILLIN\CLAVULANIC ACID
     Indication: RESPIRATORY TRACT INFECTION
     Route: 042
     Dates: start: 20170807, end: 20170807

REACTIONS (2)
  - Contraindicated product administered [Fatal]
  - Respiratory depression [Fatal]

NARRATIVE: CASE EVENT DATE: 20170807
